FAERS Safety Report 7879758-5 (Version None)
Quarter: 2011Q4

REPORT INFORMATION
  Report Type: 
  Country: None (occurrence: None)
  Receive Date: 20111101
  Receipt Date: 20111027
  Transmission Date: 20120403
  Serious: Yes (Life-Threatening, Hospitalization)
  Sender: FDA-Public Use
  Company Number: GB-ELI_LILLY_AND_COMPANY-GB201110007727

PATIENT
  Sex: Male

DRUGS (1)
  1. EFFIENT [Suspect]

REACTIONS (1)
  - THROMBOSIS IN DEVICE [None]
